FAERS Safety Report 21915109 (Version 1)
Quarter: 2023Q1

REPORT INFORMATION
  Report Type: Spontaneous
  Country: US (occurrence: US)
  Receive Date: 20230126
  Receipt Date: 20230126
  Transmission Date: 20230417
  Serious: No
  Sender: FDA-Public Use
  Company Number: US-CATALYST PHARMACEUTICALS, INC-2022CAT00091

PATIENT
  Age: 61 Year
  Sex: Female
  Weight: 127.91 kg

DRUGS (4)
  1. FIRDAPSE [Suspect]
     Active Substance: AMIFAMPRIDINE PHOSPHATE
     Indication: Myasthenic syndrome
     Dosage: 20 MG, 4X/DAY
     Route: 048
     Dates: start: 20220201, end: 20220217
  2. VITAMIN D [Concomitant]
     Active Substance: VITAMIN D NOS
     Dosage: 1.25 MG, 1X/WEEK
  3. LIDOCAINE EXTERNAL PATCH [Concomitant]
     Dosage: UNK, AS NEEDED
  4. PROAIR HFA [Concomitant]
     Active Substance: ALBUTEROL SULFATE
     Dosage: 1 PUFF, AS NEEDED

REACTIONS (5)
  - Blood pressure increased [Unknown]
  - Headache [Unknown]
  - Initial insomnia [Unknown]
  - Arthralgia [Unknown]
  - Middle insomnia [Unknown]

NARRATIVE: CASE EVENT DATE: 20220201
